FAERS Safety Report 8786486 (Version 1)
Quarter: 2012Q4

REPORT INFORMATION
  Report Type: Spontaneous
  Country: None (occurrence: None)
  Receive Date: 20120905
  Receipt Date: 20120905
  Transmission Date: 20130627
  Serious: Yes (Hospitalization)
  Sender: FDA-Public Use
  Company Number: DKLU1084256

PATIENT
  Age: 1 Year
  Sex: Female

DRUGS (6)
  1. ELSPAR [Suspect]
     Indication: ACUTE LYMPHOCYTIC LEUKAEMIA
     Route: 042
  2. VINBLASTINE (VINBLASTINE) [Concomitant]
  3. DEXTROSE (GLUCOSE) [Concomitant]
  4. NACL (SODIUM CHLORIDE) [Concomitant]
  5. KCL (POTASSIUM CHLORIDE) [Concomitant]
  6. ONDANSETRON (ONDANSETRON) [Concomitant]

REACTIONS (5)
  - Tachycardia [None]
  - Vomiting [None]
  - Pallor [None]
  - Decreased activity [None]
  - Cyanosis [None]
